FAERS Safety Report 7384585-1 (Version None)
Quarter: 2011Q1

REPORT INFORMATION
  Report Type: 
  Country: None (occurrence: None)
  Receive Date: 20110330
  Receipt Date: 20110316
  Transmission Date: 20110831
  Serious: Yes (Other)
  Sender: FDA-Public Use
  Company Number: ES-MYLANLABS-2011S1005770

PATIENT
  Age: 53 Year
  Sex: Male

DRUGS (3)
  1. AZATHIOPRINE [Suspect]
     Indication: CROHN'S DISEASE
     Route: 065
     Dates: start: 20020101
  2. AZATHIOPRINE [Suspect]
     Route: 065
     Dates: start: 20020101
  3. MESALAMINE [Concomitant]
     Indication: CROHN'S DISEASE
     Route: 065
     Dates: start: 20020101

REACTIONS (2)
  - THROMBOCYTOPENIA [None]
  - NODULAR REGENERATIVE HYPERPLASIA [None]
